FAERS Safety Report 18814026 (Version 1)
Quarter: 2021Q1

REPORT INFORMATION
  Report Type: Spontaneous
  Country: US (occurrence: US)
  Receive Date: 20210201
  Receipt Date: 20210201
  Transmission Date: 20210419
  Serious: No
  Sender: FDA-Public Use
  Company Number: US-SA-2021SA023934

PATIENT
  Age: 70 Year

DRUGS (1)
  1. DUPIXENT [Suspect]
     Active Substance: DUPILUMAB

REACTIONS (4)
  - Upper-airway cough syndrome [Unknown]
  - Periorbital swelling [Unknown]
  - Eye pruritus [Unknown]
  - Oropharyngeal pain [Unknown]
